FAERS Safety Report 18945283 (Version 3)
Quarter: 2025Q2

REPORT INFORMATION
  Report Type: Report from Study
  Country: US (occurrence: US)
  Receive Date: 20210226
  Receipt Date: 20250509
  Transmission Date: 20250717
  Serious: No
  Sender: TAKEDA
  Company Number: US-TAKEDA-2009BH001215

PATIENT
  Sex: Male
  Weight: 99 kg

DRUGS (30)
  1. HUMAN IMMUNOGLOBULIN G [Suspect]
     Active Substance: HUMAN IMMUNOGLOBULIN G
     Indication: Immunodeficiency common variable
     Dosage: 50 GRAM, Q3WEEKS
     Dates: start: 20120719
  2. HUMAN IMMUNOGLOBULIN G [Suspect]
     Active Substance: HUMAN IMMUNOGLOBULIN G
     Dosage: 50 GRAM, Q3WEEKS
     Dates: start: 20160323
  3. HUMAN IMMUNOGLOBULIN G [Suspect]
     Active Substance: HUMAN IMMUNOGLOBULIN G
     Dosage: 50 GRAM, Q3WEEKS
  4. DIPHENHYDRAMINE [Concomitant]
     Active Substance: DIPHENHYDRAMINE
  5. SODIUM CHLORIDE [Concomitant]
     Active Substance: SODIUM CHLORIDE
  6. EPINEPHRINE [Concomitant]
     Active Substance: EPINEPHRINE
  7. CRESTOR [Concomitant]
     Active Substance: ROSUVASTATIN CALCIUM
  8. KRILL OIL [Concomitant]
     Active Substance: DIETARY SUPPLEMENT\KRILL OIL
  9. COENZYME Q10 [Concomitant]
     Active Substance: DIETARY SUPPLEMENT\UBIDECARENONE
  10. ASCORBIC ACID [Concomitant]
     Active Substance: ASCORBIC ACID
  11. ZOCOR [Concomitant]
     Active Substance: SIMVASTATIN
  12. ASPIRIN [Concomitant]
     Active Substance: ASPIRIN
  13. ACETAMINOPHEN [Concomitant]
     Active Substance: ACETAMINOPHEN
  14. SODIUM CHLORIDE [Concomitant]
     Active Substance: SODIUM CHLORIDE
  15. COREG CR [Concomitant]
     Active Substance: CARVEDILOL PHOSPHATE
  16. LEVOTHYROXINE [Concomitant]
     Active Substance: LEVOTHYROXINE
  17. TADALAFIL [Concomitant]
     Active Substance: TADALAFIL
  18. TESTOSTERONE [Concomitant]
     Active Substance: TESTOSTERONE
  19. FISH OIL [Concomitant]
     Active Substance: FISH OIL
  20. SUBOXONE [Concomitant]
     Active Substance: BUPRENORPHINE HYDROCHLORIDE\NALOXONE HYDROCHLORIDE
  21. HYDROCHLOROTHIAZIDE [Concomitant]
     Active Substance: HYDROCHLOROTHIAZIDE
  22. AUGMENTIN [Concomitant]
     Active Substance: AMOXICILLIN\CLAVULANATE POTASSIUM
  23. DULOXETINE [Concomitant]
     Active Substance: DULOXETINE
  24. HYQVIA [Concomitant]
     Active Substance: HUMAN IMMUNOGLOBULIN G\HYALURONIDASE (HUMAN RECOMBINANT)
  25. Lmx [Concomitant]
  26. CLONIDINE [Concomitant]
     Active Substance: CLONIDINE
  27. QUERCETIN DIHYDRATE [Concomitant]
     Active Substance: QUERCETIN DIHYDRATE
  28. VITAMIN B COMPLEX [Concomitant]
     Active Substance: CYANOCOBALAMIN\DEXPANTHENOL\NIACINAMIDE\PYRIDOXINE HYDROCHLORIDE\RIBOFLAVIN 5^-PHOSPHATE SODIUM\THIA
  29. VITAMIN D3 [Concomitant]
     Active Substance: CHOLECALCIFEROL
  30. DIPHENHYDRAMINE HYDROCHLORIDE [Concomitant]
     Active Substance: DIPHENHYDRAMINE HYDROCHLORIDE

REACTIONS (3)
  - Infusion related reaction [Unknown]
  - COVID-19 [Not Recovered/Not Resolved]
  - Infusion site pain [Unknown]
